FAERS Safety Report 8283190-2 (Version None)
Quarter: 2012Q2

REPORT INFORMATION
  Report Type: 
  Country: None (occurrence: None)
  Receive Date: 20120413
  Receipt Date: 20120402
  Transmission Date: 20120825
  Serious: Yes (Other)
  Sender: FDA-Public Use
  Company Number: US-JNJFOC-20120401127

PATIENT
  Sex: Male
  Weight: 115.67 kg

DRUGS (10)
  1. REMICADE [Suspect]
     Route: 042
     Dates: start: 20120201
  2. REMICADE [Suspect]
     Indication: PSORIASIS
     Route: 042
     Dates: start: 20120329
  3. REMICADE [Suspect]
     Route: 042
     Dates: start: 20120201
  4. REMICADE [Suspect]
     Indication: PSORIATIC ARTHROPATHY
     Route: 042
     Dates: start: 20120329
  5. REMICADE [Suspect]
     Route: 042
     Dates: start: 20100101, end: 20110101
  6. REMICADE [Suspect]
     Route: 042
     Dates: start: 20100101, end: 20110101
  7. METHOTREXATE [Concomitant]
     Indication: PSORIATIC ARTHROPATHY
     Route: 065
  8. METHOTREXATE [Concomitant]
     Indication: PSORIASIS
     Route: 065
  9. LANTUS [Concomitant]
     Indication: DIABETES MELLITUS
     Dosage: 15-20 UNITS HS
     Route: 065
     Dates: start: 20000101
  10. NOVOLOG [Concomitant]
     Indication: DIABETES MELLITUS
     Dosage: SLIDING SCALE
     Route: 065
     Dates: start: 20000101

REACTIONS (22)
  - RESPIRATORY RATE INCREASED [None]
  - ARTHRALGIA [None]
  - DYSPNOEA [None]
  - CHEST INJURY [None]
  - PRURITUS [None]
  - NAUSEA [None]
  - FEELING HOT [None]
  - FEELING ABNORMAL [None]
  - BACK PAIN [None]
  - SUNBURN [None]
  - ROAD TRAFFIC ACCIDENT [None]
  - INFUSION RELATED REACTION [None]
  - OROPHARYNGEAL PAIN [None]
  - THROAT TIGHTNESS [None]
  - DRUG INEFFECTIVE [None]
  - MUSCLE TIGHTNESS [None]
  - ERYTHEMA [None]
  - RASH [None]
  - MUSCULOSKELETAL DISCOMFORT [None]
  - PSORIASIS [None]
  - CHEST DISCOMFORT [None]
  - HYPERHIDROSIS [None]
